FAERS Safety Report 4929584-1 (Version None)
Quarter: 2006Q1

REPORT INFORMATION
  Report Type: 
  Country: None (occurrence: None)
  Receive Date: 20060224
  Receipt Date: 20060216
  Transmission Date: 20060701
  Serious: Yes (Other)
  Sender: FDA-Public Use
  Company Number: 2006023932

PATIENT
  Age: 56 Year
  Sex: Female
  Weight: 68.0396 kg

DRUGS (8)
  1. NEURONTIN [Suspect]
     Indication: NEURALGIA
     Dates: start: 20051003, end: 20051001
  2. LYRICA [Suspect]
     Indication: NEURALGIA
     Dosage: 150 MG (75 MG, 2 IN 1 D)
     Dates: start: 20050101, end: 20060101
  3. ANTIHYPERTENSIVES (ANTIIHYPERTENSIVES) [Concomitant]
  4. LIPITOR [Concomitant]
  5. TOPAMAX [Concomitant]
  6. GLUCOSAMINE (GLUCOSAMINE) [Concomitant]
  7. METHOCARBAMOL [Concomitant]
  8. MOBIC [Concomitant]

REACTIONS (7)
  - CONDITION AGGRAVATED [None]
  - CRYING [None]
  - INCORRECT DOSE ADMINISTERED [None]
  - PAIN [None]
  - ROTATOR CUFF SYNDROME [None]
  - SUICIDAL IDEATION [None]
  - URTICARIA [None]
